FAERS Safety Report 23987271 (Version 1)
Quarter: 2024Q2

REPORT INFORMATION
  Report Type: Spontaneous
  Country: US (occurrence: None)
  Receive Date: 20240618
  Receipt Date: 20240618
  Transmission Date: 20240715
  Serious: Yes (unspecified)
  Sender: FDA-Public Use
  Company Number: None

PATIENT
  Age: 44 Year
  Sex: Female
  Weight: 54.9 kg

DRUGS (3)
  1. CIPROFLOXACIN [Suspect]
     Active Substance: CIPROFLOXACIN
     Indication: Urinary tract infection
     Dosage: FREQUENCY : EVERY 12 HOURS;?
     Route: 048
     Dates: start: 20240518, end: 20240523
  2. NORVASC [Concomitant]
     Active Substance: AMLODIPINE BESYLATE
  3. MULINO VITAMIN [Concomitant]

REACTIONS (2)
  - Tendon pain [None]
  - Therapy cessation [None]

NARRATIVE: CASE EVENT DATE: 20240518
